FAERS Safety Report 11243329 (Version 1)
Quarter: 2015Q3

REPORT INFORMATION
  Report Type: Spontaneous
  Country: US (occurrence: US)
  Receive Date: 20150707
  Receipt Date: 20150707
  Transmission Date: 20151125
  Serious: Yes (Hospitalization)
  Sender: FDA-Public Use
  Company Number: US-PFIZER INC-2015222578

PATIENT
  Age: 56 Year
  Sex: Female
  Weight: 78 kg

DRUGS (3)
  1. LYRICA [Suspect]
     Active Substance: PREGABALIN
     Indication: NEUROPATHY PERIPHERAL
     Dosage: 200 MG, 2X/DAY
     Dates: start: 2006
  2. LEVEMIR [Concomitant]
     Active Substance: INSULIN DETEMIR
     Dosage: 40 MG, 1X/DAY (EVERY NIGHT)
  3. NOVOLOG [Concomitant]
     Active Substance: INSULIN ASPART
     Dosage: A SLIDING SCALE, 3X/DAY

REACTIONS (3)
  - Cerebrovascular accident [Recovering/Resolving]
  - Blood glucose increased [Unknown]
  - Migraine [Unknown]

NARRATIVE: CASE EVENT DATE: 201409
